FAERS Safety Report 5261940-7 (Version None)
Quarter: 2007Q1

REPORT INFORMATION
  Report Type: 
  Country: None (occurrence: None)
  Receive Date: 20070308
  Receipt Date: 20070220
  Transmission Date: 20070707
  Serious: Yes (Hospitalization)
  Sender: FDA-Public Use
  Company Number: 15788

PATIENT
  Age: 63 Year
  Sex: Female

DRUGS (3)
  1. CISPLATIN [Suspect]
     Indication: OVARIAN CANCER
     Dosage: 85 MG/M2 DAILY IP
  2. PACLITAXEL [Suspect]
     Indication: OVARIAN CANCER
     Dosage: 60 MG/M2 IP
  3. DOCETAXEL [Suspect]

REACTIONS (2)
  - VAGINAL DISCHARGE [None]
  - WOUND EVISCERATION [None]
